FAERS Safety Report 25898222 (Version 1)
Quarter: 2025Q4

REPORT INFORMATION
  Report Type: Spontaneous
  Country: CN (occurrence: CN)
  Receive Date: 20251008
  Receipt Date: 20251008
  Transmission Date: 20260118
  Serious: Yes (Hospitalization, Other)
  Sender: BAXTER
  Company Number: None

PATIENT
  Age: 14 Year
  Sex: Male
  Weight: 62 kg

DRUGS (17)
  1. CYCLOPHOSPHAMIDE [Suspect]
     Active Substance: CYCLOPHOSPHAMIDE
     Indication: B precursor type acute leukaemia
     Dosage: 1.2 G,QD, ROUTE: INTRAVENOUS INJECTION
     Route: 042
     Dates: start: 20250828, end: 20250828
  2. CYCLOPHOSPHAMIDE [Suspect]
     Active Substance: CYCLOPHOSPHAMIDE
     Indication: Janus kinase 2 mutation
  3. CYCLOPHOSPHAMIDE [Suspect]
     Active Substance: CYCLOPHOSPHAMIDE
     Indication: FLT3 gene mutation
  4. SODIUM CHLORIDE [Suspect]
     Active Substance: SODIUM CHLORIDE
     Dosage: 500 ML, NS D1, ROUTE: IV INJECTION
     Route: 042
     Dates: start: 20250828, end: 20250828
  5. DEXTROSE [Suspect]
     Active Substance: DEXTROSE MONOHYDRATE
     Dosage: 500 ML, Q12H, INTRAVENOUS INJECTION
     Route: 042
     Dates: start: 20250828, end: 20250903
  6. PEGASPARGASE [Suspect]
     Active Substance: PEGASPARGASE
     Indication: B precursor type acute leukaemia
     Dosage: 1250 IU, QD, D1-D3
     Route: 030
     Dates: start: 20250830, end: 20250901
  7. PEGASPARGASE [Suspect]
     Active Substance: PEGASPARGASE
     Indication: Janus kinase 2 mutation
  8. PEGASPARGASE [Suspect]
     Active Substance: PEGASPARGASE
     Indication: FLT3 gene mutation
  9. CYTARABINE [Suspect]
     Active Substance: CYTARABINE
     Indication: B precursor type acute leukaemia
     Dosage: 0.12 G, BID; ROUTE : INTARVENOUS INJECTION
     Route: 042
     Dates: start: 20250828, end: 20250903
  10. CYTARABINE [Suspect]
     Active Substance: CYTARABINE
     Indication: Janus kinase 2 mutation
  11. CYTARABINE [Suspect]
     Active Substance: CYTARABINE
     Indication: FLT3 gene mutation
  12. ALLOPURINOL [Suspect]
     Active Substance: ALLOPURINOL
     Indication: B precursor type acute leukaemia
     Dosage: 50 MG, QD
     Route: 048
     Dates: start: 20250828, end: 20250903
  13. ALLOPURINOL [Suspect]
     Active Substance: ALLOPURINOL
     Indication: Janus kinase 2 mutation
  14. ALLOPURINOL [Suspect]
     Active Substance: ALLOPURINOL
     Indication: FLT3 gene mutation
  15. MERCAPTOPURINE [Suspect]
     Active Substance: MERCAPTOPURINE
     Indication: B precursor type acute leukaemia
     Dosage: 50 MG, QN, D1-7
     Route: 065
     Dates: start: 20250828, end: 20250903
  16. MERCAPTOPURINE [Suspect]
     Active Substance: MERCAPTOPURINE
     Indication: Janus kinase 2 mutation
  17. MERCAPTOPURINE [Suspect]
     Active Substance: MERCAPTOPURINE
     Indication: FLT3 gene mutation

REACTIONS (1)
  - Myelosuppression [Recovering/Resolving]

NARRATIVE: CASE EVENT DATE: 20250904
